FAERS Safety Report 25030403 (Version 2)
Quarter: 2025Q3

REPORT INFORMATION
  Report Type: Spontaneous
  Country: EU (occurrence: EU)
  Receive Date: 20250303
  Receipt Date: 20250809
  Transmission Date: 20251021
  Serious: Yes (Hospitalization, Other)
  Sender: ALEXION PHARMACEUTICALS
  Company Number: EU-ASTRAZENECA-202502GLO026111FR

PATIENT
  Age: 62 Year
  Sex: Female

DRUGS (13)
  1. QUETIAPINE FUMARATE [Suspect]
     Active Substance: QUETIAPINE FUMARATE
     Indication: Behaviour disorder
     Dosage: QUETIAPINE LP 300 1CP ON 03/08/2023
     Dates: start: 20230803, end: 20230803
  2. QUETIAPINE FUMARATE [Suspect]
     Active Substance: QUETIAPINE FUMARATE
     Dosage: 2 CP FROM 04/08/2023
     Dates: start: 20230804, end: 20230809
  3. HALOPERIDOL [Suspect]
     Active Substance: HALOPERIDOL
     Indication: Behaviour disorder
     Dosage: 250 MILLIGRAM, Q4W
     Dates: start: 201202, end: 201611
  4. HALOPERIDOL [Suspect]
     Active Substance: HALOPERIDOL
     Dosage: 150 MILLIGRAM, Q4W
     Dates: start: 201611, end: 202307
  5. HALOPERIDOL [Suspect]
     Active Substance: HALOPERIDOL
     Dosage: 20 MILLIGRAM, QD
     Dates: start: 202307, end: 20230809
  6. HALOPERIDOL [Suspect]
     Active Substance: HALOPERIDOL
     Route: 065
  7. HALOPERIDOL [Suspect]
     Active Substance: HALOPERIDOL
     Route: 065
  8. LOXAPINE [Suspect]
     Active Substance: LOXAPINE
     Indication: Behaviour disorder
  9. LOXAPINE [Suspect]
     Active Substance: LOXAPINE
  10. LOXAPINE [Suspect]
     Active Substance: LOXAPINE
  11. LOXAPINE [Suspect]
     Active Substance: LOXAPINE
  12. LOXAPINE [Suspect]
     Active Substance: LOXAPINE
     Route: 065
  13. DIAZEPAM [Suspect]
     Active Substance: DIAZEPAM
     Route: 065

REACTIONS (4)
  - Neuroleptic malignant syndrome [Recovered/Resolved]
  - Pulmonary embolism [Unknown]
  - Persecutory delusion [Unknown]
  - Off label use [Recovered/Resolved]

NARRATIVE: CASE EVENT DATE: 20230801
